FAERS Safety Report 5814584-X (Version None)
Quarter: 2008Q3

REPORT INFORMATION
  Report Type: 
  Country: None (occurrence: None)
  Receive Date: 20080718
  Receipt Date: 20070918
  Transmission Date: 20090109
  Serious: No
  Sender: FDA-Public Use
  Company Number: US-KINGPHARMUSA00001-K200701209

PATIENT

DRUGS (7)
  1. LEVOXYL [Suspect]
     Indication: AUTOIMMUNE THYROIDITIS
     Route: 048
     Dates: start: 20040101
  2. LEVOXYL [Suspect]
     Indication: RADIOTHERAPY
     Dosage: 88 MCG, QD
     Route: 048
     Dates: end: 20070914
  3. LEVOXYL [Suspect]
     Dosage: 75 MCG, QD
     Route: 048
     Dates: start: 20070915, end: 20070917
  4. LEVOXYL [Suspect]
     Dosage: 88 MCG, QD
     Route: 048
     Dates: start: 20070918
  5. MIRTAZAPINE [Concomitant]
     Indication: DEPRESSION
  6. PLAVIX [Concomitant]
     Dates: end: 20070918
  7. KLONOPIN [Concomitant]

REACTIONS (5)
  - ASTHENIA [None]
  - BLOOD THYROID STIMULATING HORMONE DECREASED [None]
  - DIZZINESS [None]
  - FEELING HOT [None]
  - HYPERHIDROSIS [None]
